FAERS Safety Report 5124071-2 (Version None)
Quarter: 2006Q4

REPORT INFORMATION
  Report Type: 
  Country: None (occurrence: None)
  Receive Date: 20061010
  Receipt Date: 20051026
  Transmission Date: 20070319
  Serious: No
  Sender: FDA-Public Use
  Company Number: US-BRISTOL-MYERS SQUIBB COMPANY-13159322

PATIENT
  Age: 43 Year
  Sex: Male

DRUGS (1)
  1. AVAPRO [Suspect]
     Indication: BLOOD PRESSURE
     Dates: start: 20051001

REACTIONS (3)
  - CONSTIPATION [None]
  - NON-CARDIAC CHEST PAIN [None]
  - PULMONARY CONGESTION [None]
